FAERS Safety Report 6726257-X (Version None)
Quarter: 2010Q2

REPORT INFORMATION
  Report Type: 
  Country: None (occurrence: None)
  Receive Date: 20100514
  Receipt Date: 20100512
  Transmission Date: 20101027
  Serious: Yes (Hospitalization, Other)
  Sender: FDA-Public Use
  Company Number: CA-ROXANE LABORATORIES, INC.-2010-RO-00564RO

PATIENT
  Age: 28 Year
  Sex: Female

DRUGS (5)
  1. COCAINE [Suspect]
     Indication: DRUG ABUSE
  2. LEVAMISOLE [Suspect]
  3. FILGRASTIM [Suspect]
     Dosage: 300 MCG
  4. PENICILLIN [Suspect]
     Indication: PNEUMONIA
     Route: 048
  5. ACYCLOVIR [Suspect]
     Indication: MOUTH ULCERATION

REACTIONS (5)
  - LEUKOCYTE ANTIGEN B-27 POSITIVE [None]
  - MOUTH ULCERATION [None]
  - NEUTROPENIA [None]
  - PNEUMONIA [None]
  - RHEUMATOID FACTOR POSITIVE [None]
